FAERS Safety Report 24235620 (Version 3)
Quarter: 2024Q3

REPORT INFORMATION
  Report Type: Spontaneous
  Country: CZ (occurrence: CZ)
  Receive Date: 20240822
  Receipt Date: 20240919
  Transmission Date: 20241016
  Serious: Yes (Hospitalization)
  Sender: BIOGEN
  Company Number: CZ-BIOGEN-2024BI01279034

PATIENT
  Age: 31 Year
  Sex: Female

DRUGS (7)
  1. TYSABRI [Suspect]
     Active Substance: NATALIZUMAB
     Indication: Multiple sclerosis
     Route: 050
     Dates: start: 20221209, end: 20240126
  2. PERINDOPRIL ARGININE [Concomitant]
     Active Substance: PERINDOPRIL ARGININE
     Indication: Product used for unknown indication
     Route: 050
  3. UNSPECIFIED INGREDIENT [Concomitant]
     Active Substance: UNSPECIFIED INGREDIENT
     Indication: Product used for unknown indication
     Dosage: ON SUNDAY
     Route: 050
  4. CEZERA [Concomitant]
     Indication: Product used for unknown indication
     Route: 050
  5. Deprex [Concomitant]
     Indication: Product used for unknown indication
     Route: 050
  6. Vigantol [Concomitant]
     Indication: Product used for unknown indication
     Dosage: 20 DROPS WEEKLY
     Route: 050
  7. NADROPARIN CALCIUM [Concomitant]
     Active Substance: NADROPARIN CALCIUM
     Indication: Product used for unknown indication
     Dosage: 0.9 ML 1X PER DAY FOR 3 WEEKS
     Route: 050

REACTIONS (4)
  - Uterine leiomyoma [Recovered/Resolved]
  - Vaginal polyp [Recovered/Resolved]
  - Post procedural erythema [Unknown]
  - Multiple sclerosis [Unknown]

NARRATIVE: CASE EVENT DATE: 20240702
